FAERS Safety Report 11542934 (Version 1)
Quarter: 2015Q3

REPORT INFORMATION
  Report Type: Spontaneous
  Country: US (occurrence: US)
  Receive Date: 20150923
  Receipt Date: 20150923
  Transmission Date: 20151125
  Serious: No
  Sender: FDA-Public Use
  Company Number: US-PFIZER INC-2015309186

PATIENT
  Age: 80 Year
  Sex: Female
  Weight: 79.92 kg

DRUGS (11)
  1. JANUVIA [Concomitant]
     Active Substance: SITAGLIPTIN PHOSPHATE
     Dosage: 100 MG, DAILY
     Route: 048
  2. NORCO [Concomitant]
     Active Substance: ACETAMINOPHEN\HYDROCODONE BITARTRATE
     Indication: PAIN
     Dosage: 1 TABLET (10-325 MG) EVERY EIGHT HOURS AS NEEDED
     Route: 048
  3. LANTUS [Concomitant]
     Active Substance: INSULIN GLARGINE
     Dosage: 60 IU, NIGHTLY
     Route: 058
  4. GLUCOTROL [Concomitant]
     Active Substance: GLIPIZIDE
     Dosage: 10 MG, 2X/DAY
     Route: 048
  5. LYRICA [Suspect]
     Active Substance: PREGABALIN
     Dosage: 75 MG, 3X/DAY
     Route: 048
     Dates: start: 20150902
  6. PROAIR HFA [Concomitant]
     Active Substance: ALBUTEROL SULFATE
     Dosage: 2 PUFFS INTO THE LUNGS 4 TIMES A DAY)
  7. SITAGLIPTIN-METFORMIN [Concomitant]
     Active Substance: METFORMIN\SITAGLIPTIN
     Dosage: 1 TABLET (100-1,000 MG TM24), DAILY
     Route: 048
  8. BUSPAR [Concomitant]
     Active Substance: BUSPIRONE HYDROCHLORIDE
     Dosage: 20 MG, 3X/DAY
     Route: 048
  9. PRIVINIL [Concomitant]
     Dosage: 20 MG, DAILY (FOR 90 DAYS)
     Route: 048
  10. ELAVIL [Concomitant]
     Active Substance: AMITRIPTYLINE HYDROCHLORIDE
     Dosage: 25 MG, NIGHTLY
     Route: 048
  11. HUMULIN R [Concomitant]
     Active Substance: INSULIN HUMAN
     Dosage: UNK (180-200: NO INSULIN, 201-250: 3 UNITS, 251-300: 6 UNITS, 301-350)

REACTIONS (2)
  - Weight decreased [Unknown]
  - Paraesthesia [Unknown]
